FAERS Safety Report 14525670 (Version 6)
Quarter: 2018Q3

REPORT INFORMATION
  Report Type: Spontaneous
  Country: FR (occurrence: FR)
  Receive Date: 20180213
  Receipt Date: 20180713
  Transmission Date: 20181010
  Serious: Yes (Hospitalization, Other)
  Sender: FDA-Public Use
  Company Number: FR-AUROBINDO-AUR-APL-2018-006778

PATIENT
  Age: 74 Year
  Sex: Female

DRUGS (16)
  1. BISOCE [Concomitant]
     Active Substance: BISOPROLOL
     Dosage: 5 MG, QD
     Route: 048
  2. ATORVASTATIN [Suspect]
     Active Substance: ATORVASTATIN
     Indication: HYPERCHOLESTEROLAEMIA
     Dosage: 40 MG, DAILY
     Route: 048
  3. APIXABAN [Suspect]
     Active Substance: APIXABAN
     Dosage: UNK ()
     Route: 065
  4. RANITIDINE. [Concomitant]
     Active Substance: RANITIDINE
     Indication: PROPHYLAXIS AGAINST GASTROINTESTINAL ULCER
     Dosage: 150 MG, DAILY
     Route: 048
  5. DISCOTRINE [Concomitant]
     Active Substance: NITROGLYCERIN
     Indication: PROPHYLAXIS
     Dosage: 10 MG, DAILY
     Route: 050
  6. APIXABAN [Suspect]
     Active Substance: APIXABAN
     Indication: PRODUCT USED FOR UNKNOWN INDICATION
     Dosage: 10 MG, QD
     Route: 048
     Dates: start: 20170316
  7. APIXABAN [Suspect]
     Active Substance: APIXABAN
     Dosage: UNK ()
     Route: 065
  8. RANITIDINE. [Concomitant]
     Active Substance: RANITIDINE
     Dosage: 150 MG, QD
     Route: 048
  9. APIXABAN [Suspect]
     Active Substance: APIXABAN
     Dosage: UNK ()
     Route: 065
  10. APIXABAN [Suspect]
     Active Substance: APIXABAN
     Dosage: UNK ()
     Route: 065
  11. RANITIDINE. [Concomitant]
     Active Substance: RANITIDINE
     Dosage: 150 MG, DAILY
     Route: 048
  12. BISOCE [Concomitant]
     Active Substance: BISOPROLOL
     Indication: PROPHYLAXIS
     Dosage: 5 MG, DAILY
     Route: 048
  13. BISOCE [Concomitant]
     Active Substance: BISOPROLOL
     Dosage: 5 MG, QD
     Route: 048
  14. DISCOTRINE [Concomitant]
     Active Substance: NITROGLYCERIN
     Dosage: 10 MG, QD
     Route: 050
  15. PERINDOPRIL TABLET [Suspect]
     Active Substance: PERINDOPRIL
     Indication: PROPHYLAXIS
     Dosage: 4 MG, DAILY
     Route: 048
  16. APIXABAN [Suspect]
     Active Substance: APIXABAN
     Dosage: UNK ()
     Route: 065

REACTIONS (2)
  - Infective spondylitis [Recovered/Resolved]
  - Streptococcal infection [Recovered/Resolved]

NARRATIVE: CASE EVENT DATE: 20170702
